FAERS Safety Report 12694385 (Version 3)
Quarter: 2016Q4

REPORT INFORMATION
  Report Type: Report from Study
  Country: JP (occurrence: JP)
  Receive Date: 20160829
  Receipt Date: 20161003
  Transmission Date: 20170207
  Serious: No
  Sender: FDA-Public Use
  Company Number: JP-EISAI MEDICAL RESEARCH-EC-2016-019802

PATIENT
  Age: 59 Year
  Sex: Female
  Weight: 44 kg

DRUGS (9)
  1. FERRUM [Concomitant]
     Active Substance: FERROUS FUMARATE
  2. RANMARK [Concomitant]
     Active Substance: DENOSUMAB
  3. OXYCONTIN [Concomitant]
     Active Substance: OXYCODONE HYDROCHLORIDE
  4. HALAVEN [Suspect]
     Active Substance: ERIBULIN MESYLATE
     Route: 041
     Dates: start: 20150406, end: 20150406
  5. DENOTAS [Concomitant]
     Active Substance: CALCIUM CARBONATE\CHOLECALCIFEROL\MAGNESIUM CARBONATE
  6. MAGMITT [Concomitant]
     Active Substance: MAGNESIUM OXIDE
  7. HALAVEN [Suspect]
     Active Substance: ERIBULIN MESYLATE
     Route: 041
     Dates: start: 20150427, end: 20150821
  8. HALAVEN [Suspect]
     Active Substance: ERIBULIN MESYLATE
     Indication: BREAST CANCER RECURRENT
     Route: 041
     Dates: start: 20150323, end: 20150323
  9. PURSENNID [Concomitant]
     Active Substance: SENNOSIDES A AND B

REACTIONS (1)
  - Neutropenia [Recovering/Resolving]

NARRATIVE: CASE EVENT DATE: 20150402
